FAERS Safety Report 19403290 (Version 1)
Quarter: 2021Q2

REPORT INFORMATION
  Report Type: Spontaneous
  Country: US (occurrence: US)
  Receive Date: 20210610
  Receipt Date: 20210610
  Transmission Date: 20210717
  Serious: No
  Sender: FDA-Public Use
  Company Number: US-GALDERMA-US2021008169

PATIENT
  Age: 66 Year
  Sex: Female

DRUGS (3)
  1. CLOBETASOL PROPIONATE (CLOBETASOL PROPIONATE) LOTION [Suspect]
     Active Substance: CLOBETASOL PROPIONATE
     Indication: TRANSIENT ACANTHOLYTIC DERMATOSIS
     Dosage: 0.05%
     Route: 061
  2. CLOBEX [Suspect]
     Active Substance: CLOBETASOL PROPIONATE
     Indication: TRANSIENT ACANTHOLYTIC DERMATOSIS
     Dosage: 0.05%
     Route: 061
  3. CLOBEX [Suspect]
     Active Substance: CLOBETASOL PROPIONATE
     Indication: TRANSIENT ACANTHOLYTIC DERMATOSIS
     Dosage: 0.05%
     Route: 061

REACTIONS (4)
  - Product use in unapproved indication [Recovered/Resolved]
  - Condition aggravated [Unknown]
  - Transient acantholytic dermatosis [Unknown]
  - Drug ineffective for unapproved indication [Recovered/Resolved]

NARRATIVE: CASE EVENT DATE: 202101
